FAERS Safety Report 4488623-5 (Version None)
Quarter: 2004Q4

REPORT INFORMATION
  Report Type: 
  Country: None (occurrence: None)
  Receive Date: 20041026
  Receipt Date: 20041012
  Transmission Date: 20050328
  Serious: Yes (Other)
  Sender: FDA-Public Use
  Company Number: USA041080851

PATIENT
  Age: 64 Year
  Sex: Female
  Weight: 91 kg

DRUGS (3)
  1. HUMULIN R [Suspect]
     Dosage: 14 U DAY
  2. HUMULIN N [Suspect]
     Dosage: 30 U DAY
  3. OCUVITE [Concomitant]

REACTIONS (6)
  - BLOOD GLUCOSE DECREASED [None]
  - CATARACT [None]
  - DIFFICULTY IN WALKING [None]
  - EYE HAEMORRHAGE [None]
  - FALL [None]
  - POST PROCEDURAL PAIN [None]
